FAERS Safety Report 4704263-4 (Version None)
Quarter: 2005Q2

REPORT INFORMATION
  Report Type: 
  Country: None (occurrence: None)
  Receive Date: 20050630
  Receipt Date: 20050620
  Transmission Date: 20051028
  Serious: Yes (Other)
  Sender: FDA-Public Use
  Company Number: 200512055FR

PATIENT
  Age: 56 Year
  Sex: Male
  Weight: 90 kg

DRUGS (2)
  1. LOVENOX [Suspect]
     Indication: EMBOLISM
     Route: 058
     Dates: start: 20041101
  2. LOVENOX [Suspect]
     Indication: PHLEBITIS
     Route: 058
     Dates: start: 20041101

REACTIONS (1)
  - HEPATIC NEOPLASM [None]
